FAERS Safety Report 9801406 (Version 1)
Quarter: 2014Q1

REPORT INFORMATION
  Report Type: Spontaneous
  Country: CL (occurrence: CL)
  Receive Date: 20140107
  Receipt Date: 20140107
  Transmission Date: 20141002
  Serious: Yes (Other)
  Sender: FDA-Public Use
  Company Number: CL-PFIZER INC-2014003227

PATIENT
  Age: 76 Year
  Sex: Female

DRUGS (4)
  1. XALATAN [Suspect]
     Indication: GLAUCOMA
     Dosage: 1 DF, 1X/DAY
     Dates: start: 2010
  2. LOSARTAN [Concomitant]
     Dosage: 1 DF, 2X/DAY
  3. NEVANAC [Concomitant]
     Dosage: 1 DF, 1X/DAY
  4. TIOF [Concomitant]
     Dosage: 1 DF, 2X/DAY

REACTIONS (4)
  - Cataract [Not Recovered/Not Resolved]
  - Ear infection [Not Recovered/Not Resolved]
  - Hypoacusis [Not Recovered/Not Resolved]
  - Nasopharyngitis [Not Recovered/Not Resolved]
